FAERS Safety Report 11813113 (Version 4)
Quarter: 2016Q1

REPORT INFORMATION
  Report Type: Spontaneous
  Country: US (occurrence: US)
  Receive Date: 20151209
  Receipt Date: 20160223
  Transmission Date: 20160525
  Serious: No
  Sender: FDA-Public Use
  Company Number: US-TEVA-613663ACC

PATIENT
  Age: 17 Year
  Sex: Female
  Weight: 61.74 kg

DRUGS (1)
  1. TAKE ACTION [Suspect]
     Active Substance: LEVONORGESTREL
     Indication: POST COITAL CONTRACEPTION
     Dates: start: 20151119, end: 20151119

REACTIONS (4)
  - Oedema genital [Recovered/Resolved]
  - Pruritus [Not Recovered/Not Resolved]
  - Vaginal haemorrhage [Recovered/Resolved]
  - Urethral disorder [Recovered/Resolved]

NARRATIVE: CASE EVENT DATE: 20151120
